FAERS Safety Report 4481118-4 (Version None)
Quarter: 2004Q4

REPORT INFORMATION
  Report Type: 
  Country: None (occurrence: None)
  Receive Date: 20041021
  Receipt Date: 20041012
  Transmission Date: 20050328
  Serious: Yes (Hospitalization)
  Sender: FDA-Public Use
  Company Number: IT-BRISTOL-MYERS SQUIBB COMPANY-12734570

PATIENT
  Age: 65 Year
  Sex: Female
  Weight: 85 kg

DRUGS (13)
  1. CYCLOPHOSPHAMIDE [Suspect]
     Indication: CHRONIC LYMPHOCYTIC LEUKAEMIA
     Route: 042
     Dates: start: 20040920, end: 20040922
  2. FLUDARABINE PHOSPHATE [Suspect]
     Indication: CHRONIC LYMPHOCYTIC LEUKAEMIA
     Route: 042
     Dates: start: 20040920, end: 20040922
  3. ACYCLOVIR [Concomitant]
     Dates: start: 20040920
  4. SULFAMETHOXAZOLE + TRIMETHOPRIM [Concomitant]
     Dates: start: 20040920
  5. FOLINA [Concomitant]
     Dates: start: 20030627
  6. LOPERAMIDE HCL [Concomitant]
     Dates: start: 20040927, end: 20040930
  7. DIOSMIN [Concomitant]
     Dates: start: 20010101
  8. GLYBURIDE [Concomitant]
     Dates: start: 20010101
  9. LEVOTHYROXINE SODIUM [Concomitant]
     Dates: start: 20010101
  10. LISINOPRIL [Concomitant]
     Dates: start: 20010101
  11. DOXAZOSIN MESYLATE [Concomitant]
     Dates: start: 20040101
  12. ALLOPURINOL [Concomitant]
     Dates: start: 20010101
  13. NEUPOGEN [Concomitant]
     Dates: start: 20040929, end: 20040929

REACTIONS (6)
  - ANAEMIA [None]
  - HYPERKALAEMIA [None]
  - HYPOTENSION [None]
  - PYREXIA [None]
  - RENAL FAILURE ACUTE [None]
  - TUMOUR LYSIS SYNDROME [None]
